FAERS Safety Report 12611452 (Version 4)
Quarter: 2016Q3

REPORT INFORMATION
  Report Type: Spontaneous
  Country: GB (occurrence: GB)
  Receive Date: 20160801
  Receipt Date: 20160914
  Transmission Date: 20161109
  Serious: Yes (Other)
  Sender: FDA-Public Use
  Company Number: GB-PFIZER INC-2016360369

PATIENT
  Age: 61 Year
  Sex: Male

DRUGS (5)
  1. MIRTAZAPINE. [Suspect]
     Active Substance: MIRTAZAPINE
     Dosage: UNK
     Route: 048
  2. SIMPONI [Suspect]
     Active Substance: GOLIMUMAB
     Dosage: 50 MG, MONTHLY
     Route: 058
  3. SIMPONI [Suspect]
     Active Substance: GOLIMUMAB
     Indication: PSORIATIC ARTHROPATHY
     Dosage: UNK
  4. AMITRIPTYLINE [Suspect]
     Active Substance: AMITRIPTYLINE
     Dosage: UNK
     Route: 048
  5. GABAPENTIN. [Suspect]
     Active Substance: GABAPENTIN
     Dosage: UNK

REACTIONS (10)
  - Depression [Unknown]
  - Dysphonia [Unknown]
  - Disease recurrence [Unknown]
  - Musculoskeletal stiffness [Unknown]
  - Arrhythmia [Unknown]
  - Condition aggravated [Unknown]
  - Anxiety [Unknown]
  - Psoriatic arthropathy [Unknown]
  - Headache [Unknown]
  - Erectile dysfunction [Not Recovered/Not Resolved]
